FAERS Safety Report 13379542 (Version 1)
Quarter: 2017Q1

REPORT INFORMATION
  Report Type: Report from Study
  Country: CA (occurrence: CA)
  Receive Date: 20170328
  Receipt Date: 20170328
  Transmission Date: 20170429
  Serious: Yes (Life-Threatening, Other)
  Sender: FDA-Public Use
  Company Number: CA-MYLANLABS-2017M1019321

PATIENT

DRUGS (1)
  1. TEMOZOLOMIDE. [Suspect]
     Active Substance: TEMOZOLOMIDE
     Indication: GLIOBLASTOMA
     Dosage: 75MG/M2 DAILY 2 TO 3WEEKS BEFORE THE SURGERY AS NEOADJUVANT THERAPY FOR 2WEEKS, THEN CONCOMITANTLY
     Route: 065

REACTIONS (1)
  - Hepatotoxicity [Recovering/Resolving]
